FAERS Safety Report 7926869-1 (Version None)
Quarter: 2011Q4

REPORT INFORMATION
  Report Type: 
  Country: None (occurrence: None)
  Receive Date: 20111118
  Receipt Date: 20111115
  Transmission Date: 20120403
  Serious: Yes (Other)
  Sender: FDA-Public Use
  Company Number: US-PFIZER INC-2011261822

PATIENT
  Sex: Female
  Weight: 90.7 kg

DRUGS (2)
  1. LIPITOR [Suspect]
     Indication: BLOOD CHOLESTEROL INCREASED
     Dosage: 80 MG, ONCE A DAY
     Route: 048
  2. LIPITOR [Suspect]
     Dosage: 10 MG, ONCE A DAY

REACTIONS (3)
  - LOW DENSITY LIPOPROTEIN INCREASED [None]
  - CEREBROVASCULAR ACCIDENT [None]
  - MUSCLE ATROPHY [None]
